FAERS Safety Report 17688510 (Version 1)
Quarter: 2020Q2

REPORT INFORMATION
  Report Type: Spontaneous
  Country: US (occurrence: US)
  Receive Date: 20200421
  Receipt Date: 20200421
  Transmission Date: 20200714
  Serious: Yes (Hospitalization, Other)
  Sender: FDA-Public Use
  Company Number: US-ROCHE-2586058

PATIENT
  Sex: Male
  Weight: 97.61 kg

DRUGS (4)
  1. KLONOPIN [Suspect]
     Active Substance: CLONAZEPAM
     Indication: ANXIETY DISORDER
  2. VALIUM [Suspect]
     Active Substance: DIAZEPAM
     Indication: ESSENTIAL TREMOR
     Dosage: NO
     Route: 065
     Dates: start: 2004, end: 201907
  3. VALIUM [Suspect]
     Active Substance: DIAZEPAM
     Indication: ANXIETY DISORDER
  4. KLONOPIN [Suspect]
     Active Substance: CLONAZEPAM
     Indication: ESSENTIAL TREMOR
     Dosage: NO
     Route: 048
     Dates: start: 2002, end: 201907

REACTIONS (18)
  - Off label use [Unknown]
  - Neuropathy peripheral [Recovering/Resolving]
  - Tinnitus [Recovering/Resolving]
  - Ankle fracture [Recovered/Resolved]
  - Product use in unapproved indication [Unknown]
  - Panic attack [Recovering/Resolving]
  - Nausea [Recovering/Resolving]
  - Back disorder [Unknown]
  - Brain injury [Not Recovered/Not Resolved]
  - Agoraphobia [Not Recovered/Not Resolved]
  - Post-traumatic stress disorder [Not Recovered/Not Resolved]
  - Major depression [Not Recovered/Not Resolved]
  - Suicide attempt [Recovered/Resolved]
  - Gastritis [Not Recovered/Not Resolved]
  - Drug withdrawal syndrome [Recovering/Resolving]
  - Generalised anxiety disorder [Not Recovered/Not Resolved]
  - Suicidal ideation [Recovered/Resolved]
  - Hyperhidrosis [Recovering/Resolving]

NARRATIVE: CASE EVENT DATE: 2009
